FAERS Safety Report 16077005 (Version 1)
Quarter: 2019Q1

REPORT INFORMATION
  Report Type: Spontaneous
  Country: US (occurrence: US)
  Receive Date: 20190214
  Receipt Date: 20190214
  Transmission Date: 20190418
  Serious: Yes (Other)
  Sender: FDA-Public Use
  Company Number: None

PATIENT
  Age: 75 Year
  Sex: Male

DRUGS (4)
  1. PRALUENT [Suspect]
     Active Substance: ALIROCUMAB
     Indication: HYPERLIPIDAEMIA
     Dosage: ?          OTHER FREQUENCY:Q 2 WEEKS ;?
     Route: 058
     Dates: start: 20190105, end: 20190202
  2. REPATHA [Suspect]
     Active Substance: EVOLOCUMAB
     Indication: HYPERLIPIDAEMIA
     Dosage: ?          OTHER FREQUENCY:Q 2 WEEKS ;?
     Route: 058
     Dates: start: 20181003, end: 20181229
  3. PRALUENT [Suspect]
     Active Substance: ALIROCUMAB
     Indication: ARTERIOSCLEROSIS
     Dosage: ?          OTHER FREQUENCY:Q 2 WEEKS ;?
     Route: 058
     Dates: start: 20190105, end: 20190202
  4. REPATHA [Suspect]
     Active Substance: EVOLOCUMAB
     Indication: ARTERIOSCLEROSIS
     Dosage: ?          OTHER FREQUENCY:Q 2 WEEKS ;?
     Route: 058
     Dates: start: 20181003, end: 20181229

REACTIONS (3)
  - Fatigue [None]
  - Blood creatine phosphokinase increased [None]
  - Myopathy [None]

NARRATIVE: CASE EVENT DATE: 20190207
